FAERS Safety Report 23572119 (Version 1)
Quarter: 2024Q1

REPORT INFORMATION
  Report Type: Spontaneous
  Country: US (occurrence: US)
  Receive Date: 20240227
  Receipt Date: 20240227
  Transmission Date: 20240410
  Serious: No
  Sender: FDA-Public Use
  Company Number: US-AVADEL CNS PHARMACEUTICALS, LLC-2024AVA00056

PATIENT
  Age: 66 Year
  Sex: Male

DRUGS (13)
  1. LUMRYZ [Suspect]
     Active Substance: SODIUM OXYBATE
     Indication: Narcolepsy
     Dosage: 6 G, ONCE NIGHTLY
     Route: 048
     Dates: start: 2023
  2. CIALIS [Concomitant]
     Active Substance: TADALAFIL
  3. ANDROGEL [Concomitant]
     Active Substance: TESTOSTERONE
  4. MINOXIDIL [Concomitant]
     Active Substance: MINOXIDIL
  5. VITAMIN D NOS [Concomitant]
     Active Substance: VITAMIN D NOS
  6. HYDROCODONE [Concomitant]
     Active Substance: HYDROCODONE
  7. IRON [Concomitant]
     Active Substance: IRON
  8. LIOTHYRONINE [Concomitant]
     Active Substance: LIOTHYRONINE
  9. SODIUM OXYBATE [Concomitant]
     Active Substance: SODIUM OXYBATE
  10. CYANOCOBALAMIN [Concomitant]
     Active Substance: CYANOCOBALAMIN
  11. TESTOSTERONE [Concomitant]
     Active Substance: TESTOSTERONE
  12. METHYLPHENIDATE [Concomitant]
     Active Substance: METHYLPHENIDATE
  13. PROVIGIL [Concomitant]
     Active Substance: MODAFINIL

REACTIONS (2)
  - Dissociation [Unknown]
  - Unevaluable event [None]

NARRATIVE: CASE EVENT DATE: 20240101
